FAERS Safety Report 22102345 (Version 1)
Quarter: 2023Q1

REPORT INFORMATION
  Report Type: Report from Study
  Country: BR (occurrence: BR)
  Receive Date: 20230316
  Receipt Date: 20230316
  Transmission Date: 20230418
  Serious: Yes (Life-Threatening, Hospitalization, Disabling, Other)
  Sender: FDA-Public Use
  Company Number: BR-CELLTRION INC.-2022BR015416

PATIENT

DRUGS (8)
  1. INFLIXIMAB [Suspect]
     Active Substance: INFLIXIMAB
     Indication: Rheumatoid arthritis
     Dosage: 360 ML EVERY 8 WEEKS, (START DATE: SEP)
     Route: 042
     Dates: start: 202209, end: 20221105
  2. PURAN [Concomitant]
     Active Substance: LEVOTHYROXINE SODIUM
     Dosage: 1 PILL PER DAY
     Route: 048
  3. METOPROLOL SUCCINATE [Concomitant]
     Active Substance: METOPROLOL SUCCINATE
     Dosage: 2 PILLS PER DAY
     Route: 048
  4. CORDAREX [Concomitant]
     Active Substance: AMIODARONE
     Dosage: 1 PILL PER DAY
     Route: 048
  5. SILIMALON [Concomitant]
     Indication: Liver disorder
     Dosage: 1 PILL PER DAY
     Route: 048
  6. PANTOPRAZOLE [Concomitant]
     Active Substance: PANTOPRAZOLE
     Indication: Gastric ulcer
     Dosage: 1 PILL PER DAY
     Route: 048
  7. METHOTREXATE [Concomitant]
     Active Substance: METHOTREXATE
     Indication: Rheumatoid arthritis
     Dosage: 1 PILL
     Route: 048
  8. FOLIC ACID [Concomitant]
     Active Substance: FOLIC ACID
     Dosage: 1 PILL
     Route: 048

REACTIONS (6)
  - Lung disorder [Unknown]
  - Dyspnoea [Unknown]
  - Asthenia [Unknown]
  - Bedridden [Unknown]
  - Immunodeficiency [Unknown]
  - Treatment delayed [Unknown]

NARRATIVE: CASE EVENT DATE: 20221101
